FAERS Safety Report 14756979 (Version 2)
Quarter: 2018Q2

REPORT INFORMATION
  Report Type: Report from Study
  Country: GB (occurrence: GB)
  Receive Date: 20180413
  Receipt Date: 20180524
  Transmission Date: 20180711
  Serious: Yes (Hospitalization, Other)
  Sender: FDA-Public Use
  Company Number: GB-JNJFOC-20180414854

PATIENT
  Sex: Female

DRUGS (1)
  1. STELARA [Suspect]
     Active Substance: USTEKINUMAB
     Indication: PSORIASIS
     Route: 058
     Dates: start: 2014

REACTIONS (3)
  - Post procedural infection [Unknown]
  - Surgery [Unknown]
  - Postoperative wound complication [Unknown]

NARRATIVE: CASE EVENT DATE: 2018
